FAERS Safety Report 5168279-9 (Version None)
Quarter: 2006Q4

REPORT INFORMATION
  Report Type: 
  Country: None (occurrence: None)
  Receive Date: 20061208
  Receipt Date: 20061205
  Transmission Date: 20070319
  Serious: Yes (Life-Threatening)
  Sender: FDA-Public Use
  Company Number: AU-BRISTOL-MYERS SQUIBB COMPANY-13600911

PATIENT
  Age: 40 Year
  Sex: Male

DRUGS (1)
  1. KARVEA [Suspect]
     Route: 048
     Dates: start: 19980826, end: 19981006

REACTIONS (3)
  - AGGRESSION [None]
  - DEPRESSION [None]
  - SUICIDE ATTEMPT [None]
